FAERS Safety Report 8585051-8 (Version None)
Quarter: 2012Q3

REPORT INFORMATION
  Report Type: 
  Country: None (occurrence: None)
  Receive Date: 20120810
  Receipt Date: 20120802
  Transmission Date: 20120928
  Serious: Yes (Hospitalization)
  Sender: FDA-Public Use
  Company Number: US-US-EMD SERONO, INC.-7059519

PATIENT
  Sex: Female

DRUGS (1)
  1. REBIF [Suspect]
     Indication: MULTIPLE SCLEROSIS
     Route: 058
     Dates: start: 20050314

REACTIONS (4)
  - GAIT DISTURBANCE [None]
  - LIVER FUNCTION TEST ABNORMAL [None]
  - COGNITIVE DISORDER [None]
  - INJECTION SITE PAIN [None]
